FAERS Safety Report 6819625-9 (Version None)
Quarter: 2010Q3

REPORT INFORMATION
  Report Type: 
  Country: None (occurrence: None)
  Receive Date: 20100701
  Receipt Date: 20100308
  Transmission Date: 20110219
  Serious: No
  Sender: FDA-Public Use
  Company Number: US-TEVA-227915USA

PATIENT
  Sex: Female

DRUGS (2)
  1. AZILECT [Suspect]
     Indication: PARKINSON'S DISEASE
     Dosage: 2 TABS
     Route: 048
     Dates: start: 20100301
  2. AMANTADINE HCL [Concomitant]

REACTIONS (1)
  - FREEZING PHENOMENON [None]
